FAERS Safety Report 9974016 (Version 1)
Quarter: 2014Q1

REPORT INFORMATION
  Report Type: Spontaneous
  Country: US (occurrence: None)
  Receive Date: 20140127
  Receipt Date: 20140127
  Transmission Date: 20141002
  Serious: Yes (Hospitalization)
  Sender: FDA-Public Use
  Company Number: 1253968

PATIENT
  Sex: 0

DRUGS (3)
  1. RITUXAN [Suspect]
     Indication: PRODUCT USED FOR UNKNOWN INDICATION
  2. TARCEVA [Suspect]
     Indication: PRODUCT USED FOR UNKNOWN INDICATION
     Route: 048
  3. ABATACEPT (ABATACEPT) [Concomitant]

REACTIONS (3)
  - Blood immunoglobulin G decreased [None]
  - Infection [None]
  - B-lymphocyte count decreased [None]
